FAERS Safety Report 9729750 (Version 1)
Quarter: 2013Q4

REPORT INFORMATION
  Report Type: Spontaneous
  Country: US (occurrence: US)
  Receive Date: 20131204
  Receipt Date: 20131204
  Transmission Date: 20140711
  Serious: No
  Sender: FDA-Public Use
  Company Number: US-GILEAD-2009-0022201

PATIENT
  Sex: Female
  Weight: 92.08 kg

DRUGS (10)
  1. LETAIRIS [Suspect]
     Indication: PULMONARY ARTERIAL HYPERTENSION
     Route: 048
     Dates: start: 20090506
  2. CARVEDILOL [Concomitant]
  3. BENICAR [Concomitant]
  4. EDECRIN [Concomitant]
  5. PROAIR [Concomitant]
  6. NASONEX [Concomitant]
  7. TRAMADOL [Concomitant]
  8. EFFEXOR [Concomitant]
  9. PLAQUENIL XR [Concomitant]
  10. HYDROXYZINE [Concomitant]

REACTIONS (1)
  - Dyspnoea [Unknown]
